FAERS Safety Report 8585085-3 (Version None)
Quarter: 2012Q3

REPORT INFORMATION
  Report Type: 
  Country: None (occurrence: None)
  Receive Date: 20120810
  Receipt Date: 20120801
  Transmission Date: 20120928
  Serious: Yes (Death, Other)
  Sender: FDA-Public Use
  Company Number: AU-BRISTOL-MYERS SQUIBB COMPANY-16428724

PATIENT
  Age: 84 Year
  Sex: Male

DRUGS (1)
  1. SPRYCEL [Suspect]

REACTIONS (3)
  - DIARRHOEA [None]
  - DEATH [None]
  - ATRIAL FIBRILLATION [None]
